FAERS Safety Report 4622288-4 (Version None)
Quarter: 2005Q1

REPORT INFORMATION
  Report Type: 
  Country: None (occurrence: None)
  Receive Date: 20050324
  Receipt Date: 20050324
  Transmission Date: 20050727
  Serious: No
  Sender: FDA-Public Use
  Company Number: None

PATIENT
  Age: 61 Year
  Sex: Female

DRUGS (1)
  1. CISPLATIN [Suspect]

REACTIONS (14)
  - ASTHENIA [None]
  - BLOOD PRESSURE DECREASED [None]
  - BREATH SOUNDS DECREASED [None]
  - COUGH [None]
  - DEHYDRATION [None]
  - ELECTROLYTE IMBALANCE [None]
  - FLUID INTAKE REDUCED [None]
  - HYPOKALAEMIA [None]
  - HYPOMAGNESAEMIA [None]
  - HYPONATRAEMIA [None]
  - MALNUTRITION [None]
  - NECK MASS [None]
  - SYNCOPE [None]
  - TREATMENT NONCOMPLIANCE [None]
